FAERS Safety Report 16334637 (Version 3)
Quarter: 2019Q4

REPORT INFORMATION
  Report Type: Spontaneous
  Country: JP (occurrence: JP)
  Receive Date: 20190520
  Receipt Date: 20191120
  Transmission Date: 20200122
  Serious: Yes (Death, Other)
  Sender: FDA-Public Use
  Company Number: JP-ALLERGAN-1906768US

PATIENT
  Sex: Male

DRUGS (4)
  1. BOTOX [Suspect]
     Active Substance: ONABOTULINUMTOXINA
     Indication: JOINT CONTRACTURE
     Dosage: UNK, SINGLE
     Dates: start: 20181227, end: 20181227
  2. ZONISAMIDE. [Concomitant]
     Active Substance: ZONISAMIDE
     Indication: SEIZURE
     Dosage: 100 MG, QD
     Route: 065
     Dates: start: 20171017
  3. AMITIZA [Concomitant]
     Active Substance: LUBIPROSTONE
     Indication: CONSTIPATION
     Dosage: 24 ?G, QD
     Route: 065
     Dates: start: 20171017
  4. BOTOX [Suspect]
     Active Substance: ONABOTULINUMTOXINA
     Indication: MUSCLE SPASMS
     Dosage: 300 UNITS, SINGLE
     Route: 030
     Dates: start: 20181227, end: 20181227

REACTIONS (7)
  - Oxygen saturation decreased [Fatal]
  - Atelectasis [Fatal]
  - Pneumonia [Fatal]
  - Muscular weakness [Fatal]
  - Pyrexia [Fatal]
  - Pleural effusion [Recovered/Resolved]
  - Enteral nutrition [Unknown]

NARRATIVE: CASE EVENT DATE: 20190114
